FAERS Safety Report 6537608-3 (Version None)
Quarter: 2010Q1

REPORT INFORMATION
  Report Type: 
  Country: None (occurrence: None)
  Receive Date: 20100114
  Receipt Date: 20100112
  Transmission Date: 20100710
  Serious: Yes (Hospitalization)
  Sender: FDA-Public Use
  Company Number: A0838990A

PATIENT
  Age: 29 Year
  Sex: Male

DRUGS (5)
  1. ADVAIR DISKUS 100/50 [Suspect]
     Indication: ASTHMA
     Dosage: 1PUFF PER DAY
     Route: 055
     Dates: start: 20060101
  2. ONE-A-DAY MEN'S VITAMINS [Concomitant]
  3. LEXAPRO [Concomitant]
  4. LORTAB [Concomitant]
  5. LISINOPRIL [Concomitant]

REACTIONS (6)
  - CYANOSIS [None]
  - INFLUENZA [None]
  - MEMORY IMPAIRMENT [None]
  - PNEUMONIA [None]
  - RESPIRATORY DISORDER [None]
  - TERMINAL STATE [None]
